FAERS Safety Report 24642480 (Version 2)
Quarter: 2024Q4

REPORT INFORMATION
  Report Type: Spontaneous
  Country: GB (occurrence: GB)
  Receive Date: 20241120
  Receipt Date: 20241202
  Transmission Date: 20250114
  Serious: Yes (Hospitalization)
  Sender: MYLAN
  Company Number: GB-MYLANLABS-2024M1098414

PATIENT
  Age: 72 Year
  Sex: Male
  Weight: 101.3 kg

DRUGS (6)
  1. CLOZARIL [Suspect]
     Active Substance: CLOZAPINE
     Indication: Schizophrenia
     Dosage: BID 50 MILLIGRAM, MANE AND 125 MILLIGRAM, NOCTE (TITRATING DOSAGE)
     Route: 048
     Dates: start: 20240926
  2. CLOZARIL [Suspect]
     Active Substance: CLOZAPINE
     Dosage: UNK
     Route: 048
     Dates: start: 20241002, end: 20241018
  3. CLOZARIL [Suspect]
     Active Substance: CLOZAPINE
     Dosage: UNK, BID (TWICE DAILY)
     Route: 048
     Dates: start: 20241105
  4. ARIPIPRAZOLE [Concomitant]
     Active Substance: ARIPIPRAZOLE
     Dosage: 10 MILLIGRAM, QD (ONCE DAILY)
     Route: 065
  5. ATORVASTATIN [Concomitant]
     Active Substance: ATORVASTATIN
     Dosage: 20 MILLIGRAM, PM (ONCE AT NIGHT)
     Route: 065
  6. PROCYCLIDINE HYDROCHLORIDE [Concomitant]
     Active Substance: PROCYCLIDINE HYDROCHLORIDE
     Dosage: 5 MILLIGRAM, BID (TWICE A DAY)
     Route: 065

REACTIONS (4)
  - Pneumonia [Unknown]
  - Eosinophilia [Recovering/Resolving]
  - Cough [Recovered/Resolved]
  - Dyspnoea [Unknown]

NARRATIVE: CASE EVENT DATE: 20240101
